FAERS Safety Report 7790274-1 (Version None)
Quarter: 2011Q3

REPORT INFORMATION
  Report Type: 
  Country: None (occurrence: None)
  Receive Date: 20110930
  Receipt Date: 20110926
  Transmission Date: 20111222
  Serious: Yes (Death, Hospitalization, Other)
  Sender: FDA-Public Use
  Company Number: PHHY2011DK85239

PATIENT
  Sex: Female

DRUGS (8)
  1. CENTYL MED KALIUMKLORID [Concomitant]
     Indication: PRODUCT USED FOR UNKNOWN INDICATION
     Route: 048
     Dates: start: 20060218, end: 20080606
  2. PANTOPRAZOLE [Concomitant]
     Indication: PRODUCT USED FOR UNKNOWN INDICATION
     Dosage: 40 MG, QD
     Dates: start: 20080528, end: 20080606
  3. BISACODYL [Concomitant]
     Indication: PRODUCT USED FOR UNKNOWN INDICATION
     Dosage: 5 MG, BID
  4. UNIKALK BASIC [Concomitant]
     Indication: PRODUCT USED FOR UNKNOWN INDICATION
     Dosage: 1 DF, BID
  5. INDOMETACIN SODIUM TRIHYDRATE [Concomitant]
     Indication: PRODUCT USED FOR UNKNOWN INDICATION
     Dates: start: 19800101
  6. MORPHINE SULFATE [Concomitant]
     Indication: PRODUCT USED FOR UNKNOWN INDICATION
     Dosage: 10 MG, BID
     Dates: start: 20080430, end: 20080606
  7. IBUPROFEN [Suspect]
     Indication: PAIN
     Dates: start: 20030101, end: 20080101
  8. CENTYL [Concomitant]
     Route: 048
     Dates: start: 20060218, end: 20080606

REACTIONS (15)
  - CARDIAC FAILURE [None]
  - DEHYDRATION [None]
  - FLUID INTAKE REDUCED [None]
  - FALL [None]
  - GASTRIC ULCER [None]
  - URINE ODOUR ABNORMAL [None]
  - HYPOPHAGIA [None]
  - MALAISE [None]
  - DUODENAL ULCER [None]
  - URINARY TRACT INFECTION [None]
  - URINE ABNORMALITY [None]
  - CONSTIPATION [None]
  - VOMITING [None]
  - NAUSEA [None]
  - ATRIAL FIBRILLATION [None]
